FAERS Safety Report 9298926 (Version 1)
Quarter: 2013Q2

REPORT INFORMATION
  Report Type: Spontaneous
  Country: US (occurrence: US)
  Receive Date: 20130520
  Receipt Date: 20130520
  Transmission Date: 20140414
  Serious: No
  Sender: FDA-Public Use
  Company Number: US-SANOFI-AVENTIS-2012SA077067

PATIENT
  Age: 19 Year
  Sex: Male

DRUGS (5)
  1. LANTUS SOLOSTAR [Suspect]
     Indication: TYPE 1 DIABETES MELLITUS
     Route: 058
  2. SOLOSTAR [Suspect]
     Indication: TYPE 1 DIABETES MELLITUS
  3. APIDRA [Suspect]
     Indication: TYPE 1 DIABETES MELLITUS
     Route: 058
  4. APIDRA SOLOSTAR [Suspect]
     Indication: TYPE 1 DIABETES MELLITUS
     Route: 058
  5. SOLOSTAR [Suspect]
     Indication: TYPE 1 DIABETES MELLITUS

REACTIONS (2)
  - Rash erythematous [Recovered/Resolved]
  - Therapeutic response decreased [Unknown]
